FAERS Safety Report 8957255 (Version 1)
Quarter: 2012Q4

REPORT INFORMATION
  Report Type: Spontaneous
  Country: DK (occurrence: None)
  Receive Date: 20121130
  Receipt Date: 20121130
  Transmission Date: 20130627
  Serious: Yes (Other)
  Sender: FDA-Public Use
  Company Number: 2012MA013634

PATIENT
  Age: 77 Year
  Sex: Male

DRUGS (12)
  1. FERROUS SULFATE [Suspect]
     Indication: ANAEMIA
     Route: 042
     Dates: start: 20120822
  2. CARDENSIEL [Concomitant]
  3. KARDEGIC [Concomitant]
  4. LASILIX [Concomitant]
  5. ELISOR [Concomitant]
  6. EUPANTOL [Concomitant]
  7. ALLOPURINOL [Concomitant]
  8. SPECIAFOLDINE [Concomitant]
  9. ATARAX [Concomitant]
  10. CALPEROS [Concomitant]
  11. MIMPARA [Concomitant]
  12. NEORECORMON [Concomitant]

REACTIONS (2)
  - Hypotension [None]
  - Blood pressure systolic decreased [None]
